FAERS Safety Report 20579145 (Version 1)
Quarter: 2022Q1

REPORT INFORMATION
  Report Type: Spontaneous
  Country: IT (occurrence: IT)
  Receive Date: 20220310
  Receipt Date: 20220310
  Transmission Date: 20220424
  Serious: Yes (Other)
  Sender: FDA-Public Use
  Company Number: IT-ABBVIE-22K-083-4310150-00

PATIENT
  Age: 21 Year
  Sex: Male

DRUGS (5)
  1. VALPROIC ACID [Suspect]
     Active Substance: VALPROIC ACID
     Indication: Product used for unknown indication
     Dosage: MG AT 7 AM AND 1000 MG AT 6 PM
     Route: 065
     Dates: start: 20200108
  2. VALPROIC ACID [Suspect]
     Active Substance: VALPROIC ACID
     Dosage: MG AT 7 AM AND 1000 MG AT 6 PM
     Route: 065
     Dates: start: 20200211
  3. VALPROIC ACID [Suspect]
     Active Substance: VALPROIC ACID
     Indication: Product used for unknown indication
     Route: 065
     Dates: start: 20200111
  4. VALPROIC ACID [Suspect]
     Active Substance: VALPROIC ACID
     Dosage: 750MG AT 7 AM AND 1250 MG (EVENING DOSE FROM 1000 MG TO 1250 MG)
     Route: 065
     Dates: start: 20200120
  5. VALPROIC ACID [Suspect]
     Active Substance: VALPROIC ACID
     Route: 065
     Dates: start: 20200303

REACTIONS (3)
  - Petit mal epilepsy [Unknown]
  - Dysphagia [Unknown]
  - Epilepsy [Unknown]

NARRATIVE: CASE EVENT DATE: 20200109
